FAERS Safety Report 14961397 (Version 1)
Quarter: 2018Q2

REPORT INFORMATION
  Report Type: Spontaneous
  Country: AU (occurrence: AU)
  Receive Date: 20180601
  Receipt Date: 20180601
  Transmission Date: 20180711
  Serious: Yes (Other)
  Sender: FDA-Public Use
  Company Number: PHHY2018AU008311

PATIENT
  Age: 61 Year
  Sex: Female

DRUGS (4)
  1. RIFAMPICIN [Concomitant]
     Active Substance: RIFAMPIN
     Indication: MYCOBACTERIAL INFECTION
     Dosage: 600 MG, QD
     Route: 065
  2. ETHAMBUTOL [Concomitant]
     Active Substance: ETHAMBUTOL HYDROCHLORIDE
     Indication: MYCOBACTERIAL INFECTION
     Dosage: 800 MG, QD
     Route: 065
  3. PYRAZINAMIDE. [Concomitant]
     Active Substance: PYRAZINAMIDE
     Indication: MYCOBACTERIAL INFECTION
     Dosage: 1.5 G, QD
     Route: 065
  4. ISONIAZID. [Suspect]
     Active Substance: ISONIAZID
     Indication: MYCOBACTERIAL INFECTION
     Dosage: 300 MG, QD
     Route: 065

REACTIONS (1)
  - Drug-induced liver injury [Unknown]
